FAERS Safety Report 20106806 (Version 1)
Quarter: 2021Q4

REPORT INFORMATION
  Report Type: Spontaneous
  Country: SI (occurrence: SI)
  Receive Date: 20211124
  Receipt Date: 20211124
  Transmission Date: 20220303
  Serious: Yes (Other)
  Sender: FDA-Public Use
  Company Number: SI-NOVARTISPH-NVSC2021SI261275

PATIENT
  Age: 82 Year
  Sex: Female

DRUGS (5)
  1. LUCENTIS [Suspect]
     Active Substance: RANIBIZUMAB
     Indication: Product used for unknown indication
     Dosage: 3 TIMES, (RIGHT EYE)
     Route: 065
     Dates: start: 2018
  2. LUCENTIS [Suspect]
     Active Substance: RANIBIZUMAB
     Dosage: 9 TIMES, (RIGHT EYE)
     Route: 065
     Dates: start: 2019
  3. LUCENTIS [Suspect]
     Active Substance: RANIBIZUMAB
     Dosage: 8 TIMES, (RIGHT EYE)
     Route: 065
     Dates: start: 2020
  4. LUCENTIS [Suspect]
     Active Substance: RANIBIZUMAB
     Dosage: 5 TIMES, (RIGHT EYE- BEOVU)
     Route: 065
     Dates: start: 2021
  5. BEOVU [Suspect]
     Active Substance: BROLUCIZUMAB-DBLL
     Indication: Product used for unknown indication
     Dosage: UNK
     Route: 065

REACTIONS (3)
  - Iridocyclitis [Unknown]
  - Condition aggravated [Recovering/Resolving]
  - Visual acuity reduced [Unknown]
